FAERS Safety Report 8032922-7 (Version None)
Quarter: 2012Q1

REPORT INFORMATION
  Report Type: 
  Country: None (occurrence: None)
  Receive Date: 20120110
  Receipt Date: 20120109
  Transmission Date: 20120608
  Serious: Yes (Other)
  Sender: FDA-Public Use
  Company Number: US-TEVA-313404USA

PATIENT
  Sex: Male

DRUGS (1)
  1. ACYCLOVIR [Suspect]
     Dates: start: 20111101

REACTIONS (11)
  - RASH GENERALISED [None]
  - SWELLING [None]
  - PHARYNGEAL OEDEMA [None]
  - OPHTHALMOPLEGIA [None]
  - PRURITUS [None]
  - HYPOAESTHESIA ORAL [None]
  - HYPERSENSITIVITY [None]
  - HYPOAESTHESIA [None]
  - URTICARIA [None]
  - ARTHRALGIA [None]
  - SERUM SICKNESS [None]
